FAERS Safety Report 22629466 (Version 1)
Quarter: 2023Q2

REPORT INFORMATION
  Report Type: Spontaneous
  Country: US (occurrence: None)
  Receive Date: 20230619
  Receipt Date: 20230619
  Transmission Date: 20230721
  Serious: No
  Sender: FDA-Public Use
  Company Number: None

PATIENT
  Sex: Male

DRUGS (2)
  1. NIVESTYM [Suspect]
     Active Substance: FILGRASTIM-AAFI
     Indication: Malignant connective tissue neoplasm
     Dosage: OTHER STRENGTH : 300 UG/ML;?FREQUENCY : DAILY;?
     Route: 058
     Dates: start: 202212
  2. NIVESTYM [Suspect]
     Active Substance: FILGRASTIM-AAFI
     Indication: Soft tissue sarcoma

REACTIONS (1)
  - Malignant neoplasm progression [None]
